FAERS Safety Report 10215571 (Version 2)
Quarter: 2014Q3

REPORT INFORMATION
  Report Type: Spontaneous
  Country: DE (occurrence: DE)
  Receive Date: 20140604
  Receipt Date: 20140804
  Transmission Date: 20150326
  Serious: Yes (Death, Other)
  Sender: FDA-Public Use
  Company Number: DE-ROCHE-1410825

PATIENT
  Age: 73 Year
  Sex: Female

DRUGS (2)
  1. ZELBORAF [Suspect]
     Active Substance: VEMURAFENIB
     Indication: NEOPLASM MALIGNANT
  2. ZELBORAF [Suspect]
     Active Substance: VEMURAFENIB
     Indication: METASTASES TO SKIN
     Dosage: 6 WEEKS IN TOTAL
     Route: 065
     Dates: start: 201403, end: 201404

REACTIONS (8)
  - Hyperkeratosis [Unknown]
  - Malignant neoplasm progression [Fatal]
  - Rash [Recovered/Resolved]
  - Renal failure [Unknown]
  - Solar dermatitis [Unknown]
  - Metastasis [Unknown]
  - Squamous cell carcinoma of skin [Unknown]
  - Keratoacanthoma [Unknown]

NARRATIVE: CASE EVENT DATE: 20140312
